FAERS Safety Report 7688868-7 (Version None)
Quarter: 2011Q3

REPORT INFORMATION
  Report Type: 
  Country: None (occurrence: None)
  Receive Date: 20110817
  Receipt Date: 20110805
  Transmission Date: 20111222
  Serious: Yes (Hospitalization, Other)
  Sender: FDA-Public Use
  Company Number: PHHY2009CA19259

PATIENT
  Sex: Female

DRUGS (3)
  1. SANDOSTATIN LAR [Suspect]
     Indication: ACROMEGALY
     Dosage: 40 MG, EVERY 4 WEEKS
     Route: 030
     Dates: start: 20041103
  2. SANDOSTATIN LAR [Suspect]
     Dosage: 30 MG, QMO
     Route: 030
  3. SANDOSTATIN LAR [Suspect]
     Dosage: 40 MG EVERY 4 WEEKS
     Route: 030

REACTIONS (24)
  - NEOPLASM PROGRESSION [None]
  - THYROID DISORDER [None]
  - MUSCULOSKELETAL STIFFNESS [None]
  - HAEMOGLOBIN DECREASED [None]
  - CONTUSION [None]
  - SNEEZING [None]
  - VISUAL IMPAIRMENT [None]
  - DIZZINESS [None]
  - VOMITING [None]
  - PAIN IN JAW [None]
  - HORDEOLUM [None]
  - INSULIN-LIKE GROWTH FACTOR INCREASED [None]
  - HYPONATRAEMIA [None]
  - DIPLOPIA [None]
  - EAR INFECTION [None]
  - HYPOAESTHESIA [None]
  - HEADACHE [None]
  - EYELID FUNCTION DISORDER [None]
  - FEELING COLD [None]
  - FALL [None]
  - ENERGY INCREASED [None]
  - EYELID INFECTION [None]
  - EYELID OEDEMA [None]
  - STRESS [None]
